FAERS Safety Report 9698173 (Version 1)
Quarter: 2013Q4

REPORT INFORMATION
  Report Type: Spontaneous
  Country: US (occurrence: US)
  Receive Date: 20131120
  Receipt Date: 20131120
  Transmission Date: 20140711
  Serious: Yes (Other)
  Sender: FDA-Public Use
  Company Number: US-PFIZER INC-2013322541

PATIENT
  Age: 31 Year
  Sex: Female

DRUGS (14)
  1. CELEBREX [Suspect]
     Dosage: 200 MG, 1X/DAY
     Route: 048
     Dates: start: 20120911
  2. NORVASC [Suspect]
     Dosage: 2.5 MG, 1X/DAY
     Route: 048
     Dates: start: 20111115
  3. NORVASC [Suspect]
     Dosage: 5 MG, 1X/DAY
     Route: 048
     Dates: start: 20120928
  4. GLUCOTROL XL [Suspect]
     Dosage: 10 MG, 1X/DAY
     Route: 048
     Dates: start: 20120928
  5. TESSALON [Suspect]
     Indication: COUGH
     Dosage: 100 MG CAPSULE, 1 CAPS TO 2 CAPS 3 TIMES A DAY AS NEEDED
     Route: 048
     Dates: start: 20120214
  6. TYLENOL [Concomitant]
     Indication: ARTHRITIS
     Dosage: 650MG EVERY 8 HOURS (NOT TO EXCEED 4000 MG/DAY)
     Route: 048
     Dates: start: 20131104
  7. LORATADINE [Concomitant]
     Dosage: 10 MG, 1X/DAY
     Route: 048
     Dates: start: 20130305
  8. NASONEX [Concomitant]
     Dosage: 1 SPRAY INTRANASALLY IN EACH NOSTRIL (2 SPRAYS) ONCE DAILY
     Route: 045
     Dates: start: 20130305
  9. TRAMADOL [Concomitant]
     Dosage: 50 MG, 3X/DAY
     Route: 048
     Dates: start: 20121119
  10. ROBITUSSIN [Concomitant]
     Indication: COUGH
     Dosage: 5MG EVERY 6 HOURS AS NEEDED
     Route: 048
     Dates: start: 20120214
  11. ROBITUSSIN [Concomitant]
     Indication: PULMONARY CONGESTION
  12. ALBUTEROL [Concomitant]
     Indication: WHEEZING
     Dosage: 2 PUFF INHALED EVERY 4 TO 6 HOURS AS NEEDED
     Route: 055
     Dates: start: 20120214
  13. PRILOSEC [Concomitant]
     Dosage: 20 MG, 1X/DAY
     Route: 048
     Dates: start: 20111115
  14. ZYRTEC [Concomitant]
     Dosage: UNK
     Dates: start: 20110913

REACTIONS (9)
  - Otitis media acute [Unknown]
  - Diabetes mellitus inadequate control [Unknown]
  - Sexually transmitted disease [Unknown]
  - Hypokalaemia [Unknown]
  - Acute sinusitis [Unknown]
  - Ingrowing nail [Unknown]
  - Lipid metabolism disorder [Unknown]
  - Headache [Unknown]
  - Temporomandibular joint syndrome [Unknown]
